FAERS Safety Report 22030519 (Version 1)
Quarter: 2023Q1

REPORT INFORMATION
  Report Type: Spontaneous
  Country: US (occurrence: US)
  Receive Date: 20230223
  Receipt Date: 20230223
  Transmission Date: 20230418
  Serious: No
  Sender: FDA-Public Use
  Company Number: US-LANTHEUS-LMI-2022-01272

PATIENT

DRUGS (1)
  1. DEFINITY [Suspect]
     Active Substance: PERFLUTREN
     Indication: Product used for unknown indication
     Dosage: 4 MILLILITRE (DILUTION DETAILS NOT REPORTED)
     Route: 042
     Dates: start: 20221019, end: 20221019

REACTIONS (3)
  - Pain in jaw [Unknown]
  - Hot flush [Unknown]
  - Back pain [Unknown]

NARRATIVE: CASE EVENT DATE: 20221019
